FAERS Safety Report 8249149-6 (Version None)
Quarter: 2012Q2

REPORT INFORMATION
  Report Type: 
  Country: None (occurrence: None)
  Receive Date: 20120402
  Receipt Date: 20120326
  Transmission Date: 20120825
  Serious: No
  Sender: FDA-Public Use
  Company Number: US-PFIZER INC-2012075104

PATIENT
  Sex: Female

DRUGS (2)
  1. LYRICA [Suspect]
     Indication: TENDONITIS
     Dosage: UNK
     Dates: end: 20120101
  2. LYRICA [Suspect]
     Indication: MYALGIA

REACTIONS (1)
  - TREMOR [None]
